FAERS Safety Report 8263569-5 (Version None)
Quarter: 2012Q2

REPORT INFORMATION
  Report Type: 
  Country: None (occurrence: None)
  Receive Date: 20120405
  Receipt Date: 20120328
  Transmission Date: 20120825
  Serious: Yes (Other)
  Sender: FDA-Public Use
  Company Number: CHPA2012US005668

PATIENT
  Age: 52 Year
  Sex: Female

DRUGS (1)
  1. VOLTAREN [Suspect]
     Indication: BONE PAIN
     Dosage: 1 GRAM, UNK
     Route: 061
     Dates: end: 20120327

REACTIONS (9)
  - CLAVICLE FRACTURE [None]
  - OFF LABEL USE [None]
  - MOBILITY DECREASED [None]
  - THERAPEUTIC RESPONSE UNEXPECTED [None]
  - DRUG ADMINISTERED AT INAPPROPRIATE SITE [None]
  - ARTHROPATHY [None]
  - ROAD TRAFFIC ACCIDENT [None]
  - ARTHRALGIA [None]
  - WRONG TECHNIQUE IN DRUG USAGE PROCESS [None]
